FAERS Safety Report 12289408 (Version 1)
Quarter: 2016Q2

REPORT INFORMATION
  Report Type: Spontaneous
  Country: AR (occurrence: AR)
  Receive Date: 20160421
  Receipt Date: 20160421
  Transmission Date: 20160815
  Serious: Yes (Hospitalization)
  Sender: FDA-Public Use
  Company Number: AR-ROCHE-1744644

PATIENT
  Age: 70 Year
  Sex: Female

DRUGS (3)
  1. VALIXA [Suspect]
     Active Substance: VALGANCICLOVIR
     Route: 065
     Dates: start: 201604
  2. IMMUNOSUPPRESSANTS [Concomitant]
     Active Substance: UNSPECIFIED INGREDIENT
     Indication: CYTOMEGALOVIRUS INFECTION
  3. VALIXA [Suspect]
     Active Substance: VALGANCICLOVIR
     Indication: CYTOMEGALOVIRUS INFECTION
     Dosage: JUL-AUG
     Route: 065
     Dates: start: 2011

REACTIONS (1)
  - Cytomegalovirus infection [Not Recovered/Not Resolved]

NARRATIVE: CASE EVENT DATE: 201604
